FAERS Safety Report 14711340 (Version 2)
Quarter: 2018Q2

REPORT INFORMATION
  Report Type: Spontaneous
  Country: US (occurrence: US)
  Receive Date: 20180403
  Receipt Date: 20180530
  Transmission Date: 20180711
  Serious: Yes (Hospitalization, Other)
  Sender: FDA-Public Use
  Company Number: US-GLAXOSMITHKLINE-US2018GSK056503

PATIENT
  Age: 65 Year
  Sex: Female

DRUGS (4)
  1. VENTOLIN HFA [Suspect]
     Active Substance: ALBUTEROL SULFATE
     Indication: ASTHMA
  2. VENTOLIN HFA [Suspect]
     Active Substance: ALBUTEROL SULFATE
     Indication: DYSPNOEA
     Route: 055
  3. LEVOTHYROXINE. [Concomitant]
     Active Substance: LEVOTHYROXINE
  4. FLUOXETINE [Concomitant]
     Active Substance: FLUOXETINE HYDROCHLORIDE

REACTIONS (10)
  - Myopia [Not Recovered/Not Resolved]
  - Hysterectomy [Recovering/Resolving]
  - Memory impairment [Not Recovered/Not Resolved]
  - Surgery [Recovering/Resolving]
  - Postoperative wound complication [Recovering/Resolving]
  - Abdominal pain [Unknown]
  - Chemotherapy [Unknown]
  - Pneumonia [Recovered/Resolved]
  - Ovarian cancer stage III [Unknown]
  - Cough [Recovered/Resolved]

NARRATIVE: CASE EVENT DATE: 201709
